FAERS Safety Report 8403477-X (Version None)
Quarter: 2012Q2

REPORT INFORMATION
  Report Type: 
  Country: None (occurrence: None)
  Receive Date: 20120601
  Receipt Date: 20120524
  Transmission Date: 20120825
  Serious: Yes (Other)
  Sender: FDA-Public Use
  Company Number: CA-ELI_LILLY_AND_COMPANY-CA201205008963

PATIENT
  Sex: Male

DRUGS (3)
  1. LANTUS [Concomitant]
     Dosage: 24 U, EACH EVENING
  2. LANTUS [Concomitant]
     Indication: DIABETES MELLITUS
     Dosage: 24 U, EACH MORNING
  3. HUMALOG [Suspect]
     Indication: DIABETES MELLITUS
     Dosage: UNK

REACTIONS (2)
  - BLINDNESS [None]
  - EYE DEGENERATIVE DISORDER [None]
